FAERS Safety Report 12665229 (Version 2)
Quarter: 2017Q1

REPORT INFORMATION
  Report Type: Spontaneous
  Country: US (occurrence: US)
  Receive Date: 20160818
  Receipt Date: 20170308
  Transmission Date: 20170428
  Serious: Yes (Other)
  Sender: FDA-Public Use
  Company Number: US-AMGEN-USASP2016104894

PATIENT
  Age: 51 Year
  Sex: Female

DRUGS (1)
  1. PROLIA [Suspect]
     Active Substance: DENOSUMAB
     Indication: OSTEOPOROSIS
     Dosage: UNK
     Route: 065
     Dates: start: 201606

REACTIONS (10)
  - Tooth fracture [Unknown]
  - Pain [Unknown]
  - Pain in jaw [Unknown]
  - Vitamin D decreased [Unknown]
  - Skin reaction [Unknown]
  - Multiple sclerosis [Unknown]
  - Decreased immune responsiveness [Unknown]
  - Tooth disorder [Unknown]
  - Dental caries [Unknown]
  - Condition aggravated [Not Recovered/Not Resolved]

NARRATIVE: CASE EVENT DATE: 2016
